FAERS Safety Report 6250151-4 (Version None)
Quarter: 2009Q2

REPORT INFORMATION
  Report Type: 
  Country: None (occurrence: None)
  Receive Date: 20090626
  Receipt Date: 20090618
  Transmission Date: 20091009
  Serious: Yes (Hospitalization)
  Sender: FDA-Public Use
  Company Number: TPA2009A01486

PATIENT
  Sex: Female

DRUGS (1)
  1. KAPIDEX [Suspect]
     Indication: DRUG USE FOR UNKNOWN INDICATION
     Dosage: 60 MG, PER ORAL
     Route: 048
     Dates: start: 20090615

REACTIONS (7)
  - ABDOMINAL PAIN UPPER [None]
  - DIARRHOEA [None]
  - HYPERSENSITIVITY [None]
  - NAUSEA [None]
  - THINKING ABNORMAL [None]
  - VISION BLURRED [None]
  - VOMITING [None]
